FAERS Safety Report 21316231 (Version 1)
Quarter: 2022Q3

REPORT INFORMATION
  Report Type: Spontaneous
  Country: US (occurrence: US)
  Receive Date: 20220910
  Receipt Date: 20220910
  Transmission Date: 20221026
  Serious: Yes (Death, Other)
  Sender: FDA-Public Use
  Company Number: US-Shilpa Medicare Limited-SML-US-2022-01089

PATIENT
  Age: 59 Year
  Sex: Female

DRUGS (2)
  1. DOCETAXEL [Suspect]
     Active Substance: DOCETAXEL
     Indication: Non-small cell lung cancer
     Route: 065
  2. CISPLATIN [Suspect]
     Active Substance: CISPLATIN
     Indication: Non-small cell lung cancer
     Route: 065

REACTIONS (8)
  - Salmonellosis [Fatal]
  - Vaginitis gardnerella [Fatal]
  - Salmonella sepsis [Fatal]
  - Lung abscess [Fatal]
  - Pneumonia salmonella [Fatal]
  - Urinary tract infection bacterial [Fatal]
  - Disease progression [Fatal]
  - Drug ineffective [Fatal]
